FAERS Safety Report 12981558 (Version 3)
Quarter: 2016Q4

REPORT INFORMATION
  Report Type: Spontaneous
  Country: GR (occurrence: GR)
  Receive Date: 20161129
  Receipt Date: 20161215
  Transmission Date: 20170207
  Serious: Yes (Other)
  Sender: FDA-Public Use
  Company Number: GR-ROCHE-1860861

PATIENT
  Age: 61 Year
  Sex: Male

DRUGS (3)
  1. HYDROXYUREA. [Concomitant]
     Active Substance: HYDROXYUREA
     Indication: POLYCYTHAEMIA
     Route: 065
  2. HYDROXYUREA. [Concomitant]
     Active Substance: HYDROXYUREA
     Indication: THROMBOCYTOPENIA
     Route: 065
  3. XOLAIR [Suspect]
     Active Substance: OMALIZUMAB
     Indication: ASTHMA
     Route: 065
     Dates: start: 201006

REACTIONS (2)
  - Myelofibrosis [Not Recovered/Not Resolved]
  - Platelet count increased [Not Recovered/Not Resolved]
